FAERS Safety Report 9932053 (Version 2)
Quarter: 2014Q1

REPORT INFORMATION
  Report Type: Spontaneous
  Country: US (occurrence: US)
  Receive Date: 20140228
  Receipt Date: 20140228
  Transmission Date: 20141002
  Serious: No
  Sender: FDA-Public Use
  Company Number: US-ABBVIE-13P-163-1140691-00

PATIENT
  Sex: Male
  Weight: 70.37 kg

DRUGS (8)
  1. ANDROGEL [Suspect]
     Indication: BLOOD TESTOSTERONE DECREASED
     Dosage: OFF AND ON PERIODICALLY, DUE TO NONMEDICAL REASONS
     Route: 061
     Dates: start: 2001, end: 2003
  2. ANDROGEL [Suspect]
     Route: 061
     Dates: start: 2008, end: 2009
  3. ANDROGEL [Suspect]
     Route: 061
     Dates: start: 2011, end: 2011
  4. LISINOPRIL [Concomitant]
     Indication: HYPERTENSION
  5. AMLODIPINE [Concomitant]
     Indication: HYPERTENSION
  6. FLOMAX [Concomitant]
     Indication: PRODUCT USED FOR UNKNOWN INDICATION
  7. FISH OIL [Concomitant]
     Indication: PRODUCT USED FOR UNKNOWN INDICATION
  8. VITAMIN B COMPLEX [Concomitant]
     Indication: PRODUCT USED FOR UNKNOWN INDICATION

REACTIONS (4)
  - Inappropriate schedule of drug administration [Not Recovered/Not Resolved]
  - Therapeutic response unexpected [Recovered/Resolved]
  - Libido increased [Recovered/Resolved]
  - Testicular atrophy [Recovered/Resolved]
